FAERS Safety Report 8993631 (Version 1)
Quarter: 2013Q1

REPORT INFORMATION
  Report Type: Spontaneous
  Country: IN (occurrence: IN)
  Receive Date: 20130102
  Receipt Date: 20130102
  Transmission Date: 20140127
  Serious: Yes (Other)
  Sender: FDA-Public Use
  Company Number: IN-ALLERGAN-1218065US

PATIENT
  Age: 55 Year
  Sex: Female

DRUGS (1)
  1. ZYMAXID TM [Suspect]
     Indication: POSTOPERATIVE CARE
     Route: 047

REACTIONS (1)
  - Endophthalmitis [Recovering/Resolving]
